FAERS Safety Report 7669796-X (Version None)
Quarter: 2011Q3

REPORT INFORMATION
  Report Type: 
  Country: None (occurrence: None)
  Receive Date: 20110808
  Receipt Date: 20110801
  Transmission Date: 20111222
  Serious: Yes (Death, Life-Threatening)
  Sender: FDA-Public Use
  Company Number: JP-AMGEN-JPNCT2010003299

PATIENT
  Age: 79 Year
  Sex: Male
  Weight: 51 kg

DRUGS (9)
  1. MUCOSTA [Concomitant]
     Route: 048
  2. DUROTEP TAKEDA [Concomitant]
     Route: 062
  3. LOXOPROFEN [Concomitant]
     Route: 048
  4. ANTIHISTAMINES [Concomitant]
     Indication: PROPHYLAXIS
     Route: 065
  5. VERAPAMIL HCL [Concomitant]
     Indication: SUPRAVENTRICULAR TACHYCARDIA
     Route: 042
  6. LAXOBERON [Concomitant]
     Route: 048
  7. MAGNESIUM SULFATE [Concomitant]
     Route: 048
  8. PANITUMUMAB [Suspect]
     Indication: COLORECTAL CANCER
     Dosage: 6 MG/KG, Q2WK
     Route: 041
     Dates: start: 20100903, end: 20101015
  9. CORTICOSTEROIDS [Concomitant]
     Indication: PROPHYLAXIS
     Route: 065

REACTIONS (6)
  - URINARY TRACT INFECTION [None]
  - MULTI-ORGAN FAILURE [None]
  - SUPRAVENTRICULAR TACHYCARDIA [None]
  - HYPOKALAEMIA [None]
  - DERMATITIS ACNEIFORM [None]
  - HYPOCALCAEMIA [None]
